FAERS Safety Report 10071871 (Version 1)
Quarter: 2014Q2

REPORT INFORMATION
  Report Type: Spontaneous
  Country: US (occurrence: US)
  Receive Date: 20140411
  Receipt Date: 20140411
  Transmission Date: 20141212
  Serious: No
  Sender: FDA-Public Use
  Company Number: US-BIOGENIDEC-2014BI034277

PATIENT
  Sex: Female
  Weight: 108 kg

DRUGS (16)
  1. TYSABRI [Suspect]
     Indication: PRODUCT USED FOR UNKNOWN INDICATION
     Route: 042
  2. TECFIDERA [Concomitant]
     Route: 048
     Dates: start: 201306
  3. VITAMIN D [Concomitant]
  4. METFORMIN [Concomitant]
  5. GLYBURIDE [Concomitant]
  6. VYVANSE [Concomitant]
  7. LIPITOR [Concomitant]
  8. SINGULAIR [Concomitant]
  9. PROZAC [Concomitant]
  10. ALBUTEROL [Concomitant]
  11. PROAIR [Concomitant]
  12. LEVEMIR [Concomitant]
  13. NOVOLOG [Concomitant]
  14. COPAXONE [Concomitant]
  15. CODEINE [Concomitant]
  16. IODINE [Concomitant]

REACTIONS (1)
  - Hypersensitivity [Unknown]
